FAERS Safety Report 14916800 (Version 2)
Quarter: 2018Q2

REPORT INFORMATION
  Report Type: Spontaneous
  Country: US (occurrence: US)
  Receive Date: 20180520
  Receipt Date: 20180616
  Transmission Date: 20180711
  Serious: No
  Sender: FDA-Public Use
  Company Number: US-JNJFOC-20180427894

PATIENT
  Sex: Female
  Weight: 77.11 kg

DRUGS (3)
  1. TOPAMAX [Suspect]
     Active Substance: TOPIRAMATE
     Indication: MIGRAINE PROPHYLAXIS
     Route: 048
     Dates: start: 2016, end: 2016
  2. CYMBALTA [Concomitant]
     Active Substance: DULOXETINE HYDROCHLORIDE
     Indication: DEPRESSION
     Route: 065
  3. TOPAMAX [Suspect]
     Active Substance: TOPIRAMATE
     Indication: MIGRAINE PROPHYLAXIS
     Route: 048
     Dates: start: 2016, end: 2016

REACTIONS (9)
  - Hair growth abnormal [Unknown]
  - Abnormal loss of weight [Unknown]
  - Decreased appetite [Unknown]
  - Drug ineffective [Unknown]
  - Insomnia [Unknown]
  - Abdominal discomfort [Unknown]
  - Thinking abnormal [Unknown]
  - Alopecia [Not Recovered/Not Resolved]
  - Depression [Unknown]
